FAERS Safety Report 5105130-7 (Version None)
Quarter: 2006Q3

REPORT INFORMATION
  Report Type: 
  Country: None (occurrence: None)
  Receive Date: 20060911
  Receipt Date: 20060829
  Transmission Date: 20061208
  Serious: Yes (Life-Threatening, Other)
  Sender: FDA-Public Use
  Company Number: 2006105132

PATIENT
  Age: 80 Year
  Sex: Female
  Weight: 58.9676 kg

DRUGS (14)
  1. TIKOSYN [Suspect]
     Indication: ATRIAL FIBRILLATION
     Dosage: 1000 MCG (500 MCG, 2 IN 1 D), ORAL
     Route: 048
     Dates: start: 20060818
  2. CLONIDINE [Suspect]
     Indication: HYPERTENSION
     Dosage: 0.2 MG (0.2 MG, FREQUENCY:  DAILY INTERVAL: ONE TIME)
     Dates: start: 20060819, end: 20060819
  3. COUMADIN [Concomitant]
  4. LIPITOR [Concomitant]
  5. DIGOXIN [Concomitant]
  6. ISOSORBIDE (ISOSORBIDE) [Concomitant]
  7. SOTALOL (SOTALOL) [Concomitant]
  8. POTASSIUM (POTASSIUM) [Concomitant]
  9. FUROSEMIDE [Concomitant]
  10. STOOL SOFTENER (DOCUSATE SODIUM) [Concomitant]
  11. CRANBERRY (VACCINIUM MACROCAPRON) [Concomitant]
  12. VITAMN B6 (VITAMIN B6) [Concomitant]
  13. FOLIC ACID [Concomitant]
  14. BIOTIN [Concomitant]

REACTIONS (5)
  - ATRIAL FIBRILLATION [None]
  - BLOOD PRESSURE DECREASED [None]
  - BLOOD PRESSURE INCREASED [None]
  - CARDIO-RESPIRATORY ARREST [None]
  - WEIGHT INCREASED [None]
